FAERS Safety Report 21174490 (Version 1)
Quarter: 2022Q3

REPORT INFORMATION
  Report Type: Spontaneous
  Country: US (occurrence: None)
  Receive Date: 20220805
  Receipt Date: 20220805
  Transmission Date: 20221027
  Serious: No
  Sender: FDA-Public Use
  Company Number: 2022A276904

PATIENT
  Age: 56 Year
  Sex: Female

DRUGS (1)
  1. PRILOSEC OTC [Suspect]
     Active Substance: OMEPRAZOLE MAGNESIUM
     Indication: Gastrooesophageal reflux disease
     Dosage: 1 TABLET, DAILY
     Route: 048
     Dates: end: 202207

REACTIONS (4)
  - Condition aggravated [Unknown]
  - Nausea [Unknown]
  - Rash [Recovering/Resolving]
  - Drug ineffective [Unknown]
